FAERS Safety Report 9788872 (Version 1)
Quarter: 2013Q4

REPORT INFORMATION
  Report Type: Spontaneous
  Country: FR (occurrence: FR)
  Receive Date: 20131230
  Receipt Date: 20131230
  Transmission Date: 20140711
  Serious: Yes (Death)
  Sender: FDA-Public Use
  Company Number: FR-GLAXOSMITHKLINE-B0954387A

PATIENT
  Age: 80 Year
  Sex: Male

DRUGS (12)
  1. ZOPHREN [Suspect]
     Indication: PROPHYLAXIS OF NAUSEA AND VOMITING
     Dosage: 8MG SINGLE DOSE
     Route: 042
     Dates: start: 20131025, end: 20131025
  2. MABTHERA [Suspect]
     Indication: MANTLE CELL LYMPHOMA
     Dosage: 375MGM2 SINGLE DOSE
     Route: 042
     Dates: start: 20131025, end: 20131025
  3. LEVACT (BENDAMUSTINE HYDROCHLORIDE) [Suspect]
     Indication: MANTLE CELL LYMPHOMA
     Dosage: 90MGM2 SINGLE DOSE
     Route: 042
     Dates: start: 20131025, end: 20131025
  4. RASBURICASE [Suspect]
     Indication: TUMOUR LYSIS SYNDROME
     Dosage: 50ML SINGLE DOSE
     Route: 042
     Dates: start: 20131024, end: 20131024
  5. SOLUMEDROL [Suspect]
     Dosage: 80MG SINGLE DOSE
     Route: 042
     Dates: start: 20131025, end: 20131025
  6. PRAVASTATINE [Concomitant]
     Route: 048
  7. LASILIX [Concomitant]
     Route: 048
  8. XYZALL [Concomitant]
     Dosage: 10MG PER DAY
     Route: 048
  9. CALCIPARINE [Concomitant]
     Dosage: .2ML TWICE PER DAY
     Route: 058
  10. FLECAINE [Concomitant]
     Route: 048
  11. DISCOTRINE [Concomitant]
     Route: 062
  12. HYDROCORTISONE [Concomitant]
     Dosage: 200MG SINGLE DOSE
     Dates: start: 20131025, end: 20131025

REACTIONS (2)
  - Death [Fatal]
  - Paroxysmal arrhythmia [Fatal]
